FAERS Safety Report 5524109-4 (Version None)
Quarter: 2007Q4

REPORT INFORMATION
  Report Type: 
  Country: None (occurrence: None)
  Receive Date: 20071121
  Receipt Date: 20071112
  Transmission Date: 20080405
  Serious: Yes (Death)
  Sender: FDA-Public Use
  Company Number: FR-GENENTECH-251619

PATIENT
  Age: 64 Year
  Sex: Female

DRUGS (14)
  1. MABTHERA [Suspect]
     Indication: THROMBOTIC MICROANGIOPATHY
     Dosage: 375 MG/M2, UNK
     Route: 042
     Dates: start: 20070404, end: 20070411
  2. SOLU-MEDROL [Suspect]
     Indication: THROMBOTIC MICROANGIOPATHY
     Route: 042
     Dates: start: 20070322
  3. ROVALCYTE [Concomitant]
     Indication: DRUG USE FOR UNKNOWN INDICATION
     Dates: start: 20070322, end: 20070418
  4. NEURONTIN [Concomitant]
     Indication: DRUG USE FOR UNKNOWN INDICATION
     Dates: end: 20070428
  5. NEXIUM [Concomitant]
     Indication: DRUG USE FOR UNKNOWN INDICATION
     Dates: start: 20070322, end: 20070418
  6. WELLVONE [Concomitant]
     Indication: DRUG USE FOR UNKNOWN INDICATION
     Dates: start: 20070327, end: 20070423
  7. EVEROLIMUS [Concomitant]
     Indication: DRUG USE FOR UNKNOWN INDICATION
     Dates: start: 20070323, end: 20070418
  8. PREDNISOLONE [Concomitant]
     Indication: DRUG USE FOR UNKNOWN INDICATION
  9. SOLU-MEDROL [Concomitant]
     Indication: DRUG USE FOR UNKNOWN INDICATION
  10. PROGRAF [Concomitant]
     Indication: DRUG USE FOR UNKNOWN INDICATION
  11. CELLCEPT [Concomitant]
     Indication: DRUG USE FOR UNKNOWN INDICATION
  12. CALCITE D [Concomitant]
     Indication: DRUG USE FOR UNKNOWN INDICATION
  13. PRAVASTATIN [Concomitant]
     Indication: DRUG USE FOR UNKNOWN INDICATION
  14. IMOVANE [Concomitant]
     Indication: DRUG USE FOR UNKNOWN INDICATION

REACTIONS (4)
  - ABDOMINAL PAIN [None]
  - ASCITES [None]
  - PERITONITIS BACTERIAL [None]
  - PNEUMOPERITONEUM [None]
